FAERS Safety Report 9019893 (Version 2)
Quarter: 2013Q1

REPORT INFORMATION
  Report Type: Spontaneous
  Country: US (occurrence: US)
  Receive Date: 20130118
  Receipt Date: 20130211
  Transmission Date: 20140127
  Serious: Yes (Hospitalization)
  Sender: FDA-Public Use
  Company Number: US-JNJFOC-20130105338

PATIENT
  Age: 57 Year
  Sex: Female

DRUGS (8)
  1. NUCYNTA [Suspect]
     Indication: PRODUCT USED FOR UNKNOWN INDICATION
     Route: 048
  2. FENTANYL [Suspect]
     Indication: PRODUCT USED FOR UNKNOWN INDICATION
     Route: 062
  3. LASIX [Concomitant]
     Route: 065
  4. KLONOPIN [Concomitant]
     Route: 065
  5. BACLOFEN [Concomitant]
     Route: 065
  6. WELLBUTRIN [Concomitant]
     Route: 065
  7. POTASSIUM [Concomitant]
     Route: 065
  8. PERCOCET [Concomitant]
     Route: 065

REACTIONS (1)
  - Lower limb fracture [Unknown]
